FAERS Safety Report 19807790 (Version 1)
Quarter: 2021Q3

REPORT INFORMATION
  Report Type: Spontaneous
  Country: US (occurrence: US)
  Receive Date: 20210908
  Receipt Date: 20210908
  Transmission Date: 20211014
  Serious: Yes (Hospitalization, Other)
  Sender: FDA-Public Use
  Company Number: US-ALLERGAN-2131002US

PATIENT
  Sex: Male

DRUGS (2)
  1. ASACOL HD [Suspect]
     Active Substance: MESALAMINE
     Indication: CROHN^S DISEASE
     Dosage: UNK
     Route: 048
     Dates: start: 1985, end: 2016
  2. ASACOL HD [Suspect]
     Active Substance: MESALAMINE
     Indication: COLITIS

REACTIONS (6)
  - Hyperammonaemic encephalopathy [Unknown]
  - Incorrect product administration duration [Unknown]
  - Coma [Recovered/Resolved]
  - Mental disorder [Unknown]
  - Ammonia increased [Recovering/Resolving]
  - Hepatic cirrhosis [Not Recovered/Not Resolved]

NARRATIVE: CASE EVENT DATE: 2019
